FAERS Safety Report 9714163 (Version 1)
Quarter: 2013Q4

REPORT INFORMATION
  Report Type: Spontaneous
  Country: US (occurrence: US)
  Receive Date: 20131126
  Receipt Date: 20131126
  Transmission Date: 20140711
  Serious: No
  Sender: FDA-Public Use
  Company Number: US-GILEAD-2008-0019008

PATIENT
  Age: 69 Year
  Sex: Female
  Weight: 90.72 kg

DRUGS (8)
  1. LETAIRIS [Suspect]
     Indication: PULMONARY HYPERTENSION
     Route: 048
     Dates: start: 20081010, end: 20081109
  2. ASA [Concomitant]
     Indication: PAIN
  3. PANTOPRAZOLE [Concomitant]
  4. LASIX [Concomitant]
  5. CARVEDILOL [Concomitant]
  6. ENALAPRIL [Concomitant]
  7. SIMVASTATIN [Concomitant]
  8. PLAVIX [Concomitant]

REACTIONS (2)
  - Alopecia [Recovered/Resolved with Sequelae]
  - Back pain [Recovered/Resolved with Sequelae]
